FAERS Safety Report 6266031-4 (Version None)
Quarter: 2009Q3

REPORT INFORMATION
  Report Type: 
  Country: None (occurrence: None)
  Receive Date: 20090713
  Receipt Date: 20090701
  Transmission Date: 20100115
  Serious: Yes (Hospitalization, Disabling, Other)
  Sender: FDA-Public Use
  Company Number: US-MERCK-0810USA00410

PATIENT
  Age: 62 Year
  Sex: Female
  Weight: 61 kg

DRUGS (3)
  1. FOSAMAX [Suspect]
     Indication: OSTEOPOROSIS
     Route: 048
     Dates: start: 20010406, end: 20020401
  2. FOSAMAX [Suspect]
     Route: 048
     Dates: start: 20020401, end: 20060914
  3. PREMPRO [Concomitant]
     Indication: HORMONE REPLACEMENT THERAPY
     Route: 065
     Dates: start: 19960101, end: 20070108

REACTIONS (23)
  - ACTINOMYCOSIS [None]
  - CELLULITIS [None]
  - CHRONIC OBSTRUCTIVE PULMONARY DISEASE [None]
  - DIZZINESS [None]
  - FATIGUE [None]
  - GASTROOESOPHAGEAL REFLUX DISEASE [None]
  - HIATUS HERNIA [None]
  - IMPAIRED HEALING [None]
  - JAW DISORDER [None]
  - NEUROPATHY PERIPHERAL [None]
  - OEDEMA MOUTH [None]
  - ORAL CAVITY FISTULA [None]
  - ORAL INFECTION [None]
  - ORAL PAIN [None]
  - OSTEOMYELITIS [None]
  - OSTEONECROSIS [None]
  - OTITIS MEDIA [None]
  - PLANTAR FASCIITIS [None]
  - RHEUMATOID ARTHRITIS [None]
  - STOMATITIS [None]
  - SUBCUTANEOUS ABSCESS [None]
  - TRIGEMINAL NEURALGIA [None]
  - WEIGHT INCREASED [None]
